FAERS Safety Report 10099166 (Version 1)
Quarter: 2014Q2

REPORT INFORMATION
  Report Type: Spontaneous
  Country: US (occurrence: US)
  Receive Date: 20140423
  Receipt Date: 20140423
  Transmission Date: 20141212
  Serious: No
  Sender: FDA-Public Use
  Company Number: US-009507513-1404USA003123

PATIENT
  Age: 34 Year
  Sex: Male

DRUGS (1)
  1. INVANZ [Suspect]
     Indication: GASTROINTESTINAL INFECTION
     Dosage: UNK

REACTIONS (1)
  - Clostridium difficile infection [Recovered/Resolved]
